FAERS Safety Report 17718456 (Version 1)
Quarter: 2020Q2

REPORT INFORMATION
  Report Type: Spontaneous
  Country: FR (occurrence: FR)
  Receive Date: 20200428
  Receipt Date: 20200428
  Transmission Date: 20200714
  Serious: Yes (Other)
  Sender: FDA-Public Use
  Company Number: FR-MYLANLABS-2020M1041741

PATIENT
  Age: 20 Year
  Sex: Male
  Weight: 68 kg

DRUGS (7)
  1. ZELITREX [Suspect]
     Active Substance: VALACYCLOVIR HYDROCHLORIDE
     Indication: OPPORTUNISTIC INFECTION PROPHYLAXIS
     Dosage: 1000 MILLIGRAM, QD
     Route: 048
     Dates: start: 202002, end: 202002
  2. INNOHEP [Suspect]
     Active Substance: TINZAPARIN SODIUM
     Indication: THROMBOSIS PROPHYLAXIS
     Dosage: 12000 INTERNATIONAL UNIT, QD
     Route: 058
     Dates: start: 20200129, end: 20200227
  3. PREDNISOLONE. [Concomitant]
     Active Substance: PREDNISOLONE
     Indication: LYMPHOMA
     Dosage: 25 MILLIGRAM/SQ. METER, QD
     Route: 048
     Dates: start: 20200131, end: 20200204
  4. ALLOPURINOL. [Suspect]
     Active Substance: ALLOPURINOL
     Indication: PROPHYLAXIS
     Dosage: 300 MILLIGRAM, QD
     Route: 048
     Dates: start: 20200128, end: 202002
  5. CYCLOPHOSPHAMIDE. [Concomitant]
     Active Substance: CYCLOPHOSPHAMIDE
     Indication: LYMPHOMA
     Dosage: 750 MILLIGRAM/SQ. METER, QD
     Route: 041
     Dates: start: 20200131, end: 20200131
  6. VINCRISTINE [Concomitant]
     Active Substance: VINCRISTINE
     Indication: LYMPHOMA
     Dosage: 1.4 MILLIGRAM/SQ. METER, QD
     Route: 041
     Dates: start: 20200131, end: 20200131
  7. CORTANCYL [Concomitant]
     Active Substance: PREDNISONE
     Indication: LYMPHOMA
     Dosage: 2 MILLIGRAM/KILOGRAM, QD
     Route: 048
     Dates: start: 20200128, end: 20200131

REACTIONS (1)
  - Hepatocellular injury [Recovered/Resolved]

NARRATIVE: CASE EVENT DATE: 202002
